FAERS Safety Report 25173836 (Version 1)
Quarter: 2025Q2

REPORT INFORMATION
  Report Type: Spontaneous
  Country: US (occurrence: US)
  Receive Date: 20250408
  Receipt Date: 20250408
  Transmission Date: 20250717
  Serious: No
  Sender: BIOVITRUM
  Company Number: US-BIOVITRUM-2025-US-004817

PATIENT
  Age: 69 Year
  Sex: Male

DRUGS (10)
  1. VONJO [Suspect]
     Active Substance: PACRITINIB
     Indication: Product used for unknown indication
     Route: 048
     Dates: start: 20250401
  2. ACYCLOVIR ORAL [Concomitant]
     Indication: Product used for unknown indication
     Route: 048
  3. ASPIRIN [Concomitant]
     Active Substance: ASPIRIN
     Indication: Product used for unknown indication
  4. MULTIVITAMIN ORAL [Concomitant]
     Indication: Product used for unknown indication
     Route: 048
  5. VITAMIN D3 ORAL [Concomitant]
     Indication: Product used for unknown indication
     Route: 048
  6. HYDROCHLOROTHIAZIDE ORAL [Concomitant]
     Indication: Product used for unknown indication
     Route: 048
  7. LEVOTHYROXINE SODIUM ORAL [Concomitant]
     Indication: Product used for unknown indication
     Route: 048
  8. MAGNESIUM GLUCONATE ORAL [Concomitant]
     Indication: Product used for unknown indication
     Route: 048
  9. TRAMADOL HCL ORAL [Concomitant]
     Indication: Product used for unknown indication
     Route: 048
  10. VENLAFAXINE HCL ER ORAL [Concomitant]
     Indication: Product used for unknown indication
     Route: 048

REACTIONS (1)
  - Nausea [Recovered/Resolved]
